FAERS Safety Report 19508645 (Version 1)
Quarter: 2021Q3

REPORT INFORMATION
  Report Type: Report from Study
  Country: US (occurrence: US)
  Receive Date: 20210708
  Receipt Date: 20210708
  Transmission Date: 20211014
  Serious: Yes (Other)
  Sender: FDA-Public Use
  Company Number: US-ASTRAZENECA-2021A400690

PATIENT
  Age: 27138 Day
  Sex: Male
  Weight: 79.8 kg

DRUGS (11)
  1. METOPROLOL. [Suspect]
     Active Substance: METOPROLOL
     Route: 048
  2. CALQUENCE [Suspect]
     Active Substance: ACALABRUTINIB
     Indication: CHRONIC LYMPHOCYTIC LEUKAEMIA
     Route: 048
     Dates: start: 20210227
  3. IMDUR [Suspect]
     Active Substance: ISOSORBIDE MONONITRATE
     Route: 048
  4. AMLODIPINE [Concomitant]
     Active Substance: AMLODIPINE BESYLATE
  5. CALQUENCE [Suspect]
     Active Substance: ACALABRUTINIB
     Indication: CHRONIC LYMPHOCYTIC LEUKAEMIA
     Dosage: CUTTING 1 CAPSULE DAILY AS NEEDED
     Route: 048
  6. LIPITOR [Suspect]
     Active Substance: ATORVASTATIN CALCIUM
     Route: 048
  7. CLONIDINE. [Suspect]
     Active Substance: CLONIDINE
     Route: 048
  8. HYDROCHLOROTHIAZIDE. [Suspect]
     Active Substance: HYDROCHLOROTHIAZIDE
     Route: 048
  9. ASPIRIN. [Suspect]
     Active Substance: ASPIRIN
     Route: 048
  10. PLAVIX [Concomitant]
     Active Substance: CLOPIDOGREL BISULFATE
     Indication: HAEMORRHAGE
     Dates: end: 20210225
  11. CALQUENCE [Suspect]
     Active Substance: ACALABRUTINIB
     Indication: CHRONIC LYMPHOCYTIC LEUKAEMIA
     Route: 048

REACTIONS (6)
  - Procedural haemorrhage [Unknown]
  - Impaired healing [Unknown]
  - Epistaxis [Unknown]
  - Headache [Unknown]
  - Wrong technique in product usage process [Unknown]
  - Nausea [Unknown]
